FAERS Safety Report 16698434 (Version 2)
Quarter: 2020Q3

REPORT INFORMATION
  Report Type: Report from Study
  Country: DE (occurrence: DE)
  Receive Date: 20190813
  Receipt Date: 20200916
  Transmission Date: 20201102
  Serious: Yes (Other)
  Sender: FDA-Public Use
  Company Number: DE-JNJFOC-20190201942

PATIENT

DRUGS (1)
  1. CAELYX [Suspect]
     Active Substance: DOXORUBICIN HYDROCHLORIDE
     Indication: SARCOMA METASTATIC
     Dosage: FOR TOTAL OF 6 CYCLES
     Route: 065

REACTIONS (27)
  - Vomiting [Unknown]
  - Pain [Unknown]
  - Alopecia [Unknown]
  - Leukopenia [Unknown]
  - Stomatitis [Unknown]
  - General physical health deterioration [Unknown]
  - Diarrhoea [Unknown]
  - Headache [Unknown]
  - Mucosal inflammation [Unknown]
  - Nausea [Unknown]
  - Urinary tract infection [Unknown]
  - Cough [Unknown]
  - Dysgeusia [Unknown]
  - Weight decreased [Unknown]
  - Off label use [Unknown]
  - Thrombocytopenia [Unknown]
  - Anaemia [Unknown]
  - Decreased appetite [Unknown]
  - Fatigue [Unknown]
  - Pain in extremity [Unknown]
  - Adverse event [Unknown]
  - Febrile neutropenia [Unknown]
  - Hypertension [Unknown]
  - Product use in unapproved indication [Unknown]
  - Neutropenia [Unknown]
  - Constipation [Unknown]
  - Alanine aminotransferase increased [Unknown]
